FAERS Safety Report 4762896-3 (Version None)
Quarter: 2005Q3

REPORT INFORMATION
  Report Type: 
  Country: None (occurrence: None)
  Receive Date: 20050907
  Receipt Date: 20050831
  Transmission Date: 20060218
  Serious: Yes (Death, Other)
  Sender: FDA-Public Use
  Company Number: PHBS2005BR12860

PATIENT
  Age: 73 Year
  Sex: Female

DRUGS (8)
  1. ZOMETA [Suspect]
     Indication: METASTASES TO BONE
     Dosage: 4 MG, QMO
     Route: 042
     Dates: start: 20010801, end: 20050322
  2. NOLVADEX [Concomitant]
     Route: 065
  3. TAXOL [Concomitant]
     Route: 065
  4. ADRIAMYCIN PFS [Concomitant]
     Route: 065
  5. TAXOTERE [Concomitant]
     Route: 065
  6. ENDOXAN [Concomitant]
     Route: 065
  7. CORTICOSTEROIDS [Concomitant]
     Route: 065
  8. CELEBRA [Concomitant]
     Route: 065

REACTIONS (12)
  - ASEPTIC NECROSIS BONE [None]
  - BONE DISORDER [None]
  - BONE LESION [None]
  - DENTAL PROSTHESIS PLACEMENT [None]
  - FISTULA [None]
  - GINGIVAL OPERATION [None]
  - METASTATIC NEOPLASM [None]
  - NECROSIS [None]
  - OSTEOLYSIS [None]
  - SURGERY [None]
  - TOOTH EXTRACTION [None]
  - TOOTHACHE [None]
